FAERS Safety Report 4644941-9 (Version None)
Quarter: 2005Q2

REPORT INFORMATION
  Report Type: 
  Country: None (occurrence: None)
  Receive Date: 20050422
  Receipt Date: 20050411
  Transmission Date: 20051028
  Serious: Yes (Other)
  Sender: FDA-Public Use
  Company Number: 2005056596

PATIENT
  Age: 31 Year
  Sex: Female

DRUGS (1)
  1. DEPO-PROVERA [Suspect]
     Indication: CONTRACEPTION
     Dosage: 50 MG (50 MG, SINGLE INTERVAL: MONTHLY)
     Dates: start: 20041217, end: 20041217

REACTIONS (10)
  - ABDOMINAL PAIN [None]
  - AMENORRHOEA [None]
  - BLOOD PRESSURE INCREASED [None]
  - DIZZINESS [None]
  - GALACTORRHOEA [None]
  - INSOMNIA [None]
  - MEDICATION ERROR [None]
  - NAUSEA [None]
  - NERVOUSNESS [None]
  - WEIGHT DECREASED [None]
